FAERS Safety Report 7227167-4 (Version None)
Quarter: 2011Q1

REPORT INFORMATION
  Report Type: 
  Country: None (occurrence: None)
  Receive Date: 20110114
  Receipt Date: 20110104
  Transmission Date: 20110831
  Serious: Yes (Death)
  Sender: FDA-Public Use
  Company Number: GB-SOLVAY-00310007180

PATIENT
  Age: 84 Year
  Sex: Male
  Weight: 65.2 kg

DRUGS (2)
  1. NO CREON OR ANY OTHER PANCREATIC SUPPLEMENTS TAKEN [Suspect]
     Indication: COELIAC DISEASE
     Dosage: DAILY DOSE:  20000 UNITS; 10,000 UNITS OF LIPASE TWICE DAILY
     Route: 048
  2. NO CREON OR ANY OTHER PANCREATIC SUPPLEMENTS TAKEN [Suspect]
     Dosage: MEAN DAILY DOSE OF PANCREATIN WAS 45,000 UNITS OF LIPASE. TITRATED ACCORDING TO CLINICAL RESPONSE.
     Route: 048

REACTIONS (1)
  - MYOCARDIAL ISCHAEMIA [None]
